FAERS Safety Report 26150117 (Version 1)
Quarter: 2025Q4

REPORT INFORMATION
  Report Type: Spontaneous
  Country: JP (occurrence: JP)
  Receive Date: 20251212
  Receipt Date: 20251212
  Transmission Date: 20260118
  Serious: Yes (Other)
  Sender: AMGEN
  Company Number: JP-AMGEN-JPNSP2025243880

PATIENT
  Age: 12 Year
  Sex: Male

DRUGS (8)
  1. BLINATUMOMAB [Suspect]
     Active Substance: BLINATUMOMAB
     Indication: B precursor type acute leukaemia
     Dosage: UNK
     Route: 065
  2. METHOTREXATE [Concomitant]
     Active Substance: METHOTREXATE
     Indication: Trisomy 21
     Dosage: 1.5 GRAM PER SQUARE METRE
     Route: 040
  3. METHOTREXATE [Concomitant]
     Active Substance: METHOTREXATE
     Dosage: 1.0 GRAM PER SQUARE METRE
     Route: 040
  4. METHOTREXATE [Concomitant]
     Active Substance: METHOTREXATE
     Dosage: 0.5 GRAM PER SQUARE METRE
     Route: 040
  5. METHOTREXATE [Concomitant]
     Active Substance: METHOTREXATE
     Dosage: UNK
     Route: 029
  6. METHOTREXATE [Concomitant]
     Active Substance: METHOTREXATE
     Dosage: 500 MILLIGRAM/SQ. METER
     Route: 040
  7. PREDNISOLONE [Concomitant]
     Active Substance: PREDNISOLONE
  8. CYTARABINE [Concomitant]
     Active Substance: CYTARABINE
     Indication: B precursor type acute leukaemia
     Dosage: 20 MILLIGRAM/SQ. METER, QD

REACTIONS (4)
  - Haematotoxicity [Unknown]
  - Acute lymphocytic leukaemia recurrent [Unknown]
  - Thrombocytopenia [Unknown]
  - Infection [Unknown]
